FAERS Safety Report 6616825-8 (Version None)
Quarter: 2010Q1

REPORT INFORMATION
  Report Type: 
  Country: None (occurrence: None)
  Receive Date: 20100301
  Receipt Date: 20100212
  Transmission Date: 20100710
  Serious: Yes (Life-Threatening, Hospitalization)
  Sender: FDA-Public Use
  Company Number: DSA_42302_2010

PATIENT
  Age: 39 Year
  Sex: Female
  Weight: 61.2356 kg

DRUGS (3)
  1. APLENZIN [Suspect]
     Indication: DRUG USE FOR UNKNOWN INDICATION
     Dosage: (522 MG QD ORAL)
     Route: 048
     Dates: start: 20090901, end: 20100102
  2. LAMICTAL CD [Concomitant]
  3. ZOLPIDEM [Concomitant]

REACTIONS (4)
  - BIPOLAR DISORDER [None]
  - CONVULSION [None]
  - LOSS OF CONSCIOUSNESS [None]
  - ROAD TRAFFIC ACCIDENT [None]
